FAERS Safety Report 19830318 (Version 1)
Quarter: 2021Q3

REPORT INFORMATION
  Report Type: Spontaneous
  Country: US (occurrence: US)
  Receive Date: 20210914
  Receipt Date: 20210914
  Transmission Date: 20211014
  Serious: No
  Sender: FDA-Public Use
  Company Number: US-ORGANON-O2109USA000788

PATIENT
  Age: 48 Year
  Sex: Male

DRUGS (2)
  1. STERILE WATER [Suspect]
     Active Substance: WATER
     Dosage: UNK
  2. PREGNYL [Suspect]
     Active Substance: CHORIOGONADOTROPIN ALFA
     Indication: TESTICULAR FAILURE
     Dosage: 1500 UNITS, TIW
     Route: 058
     Dates: start: 20210414

REACTIONS (3)
  - Headache [Recovered/Resolved]
  - Product dose omission issue [Unknown]
  - Fatigue [Recovered/Resolved]

NARRATIVE: CASE EVENT DATE: 202106
